FAERS Safety Report 16034186 (Version 2)
Quarter: 2019Q1

REPORT INFORMATION
  Report Type: Spontaneous
  Country: HK (occurrence: HK)
  Receive Date: 20190305
  Receipt Date: 20190308
  Transmission Date: 20190418
  Serious: Yes (Other)
  Sender: FDA-Public Use
  Company Number: HK-AUROBINDO-AUR-APL-2019-011551

PATIENT

DRUGS (3)
  1. SIMVASTATIN TABLET [Suspect]
     Active Substance: SIMVASTATIN
     Indication: PRODUCT USED FOR UNKNOWN INDICATION
     Dosage: 40 MILLIGRAM, DAILY
     Route: 048
     Dates: start: 20081003, end: 20180814
  2. STEVIA REBAUDIANA [Interacting]
     Active Substance: HERBALS\STEVIA REBAUDIUNA LEAF
     Indication: PHYTOTHERAPY
     Dosage: 4-5 PIECES/DAY
     Route: 048
     Dates: start: 201806, end: 20180814
  3. LINAGLIPTIN [Interacting]
     Active Substance: LINAGLIPTIN
     Indication: PHYTOTHERAPY
     Dosage: 5 MILLIGRAM, ONCE A DAY
     Route: 048
     Dates: start: 20170906

REACTIONS (3)
  - Drug interaction [Unknown]
  - Rhabdomyolysis [Unknown]
  - Herbal interaction [Unknown]

NARRATIVE: CASE EVENT DATE: 20180804
